FAERS Safety Report 6376065-7 (Version None)
Quarter: 2009Q3

REPORT INFORMATION
  Report Type: 
  Country: None (occurrence: None)
  Receive Date: 20090921
  Receipt Date: 20090907
  Transmission Date: 20100115
  Serious: Yes (Life-Threatening, Hospitalization, Other)
  Sender: FDA-Public Use
  Company Number: 1000008871

PATIENT
  Age: 48 Year
  Sex: Female
  Weight: 60 kg

DRUGS (2)
  1. ESCITALOPRAM OXALATE [Suspect]
     Dosage: 800 MG, ONCE, ORAL
     Route: 048
     Dates: start: 20090907, end: 20090907
  2. AMITRIPTYLINE HCL [Suspect]
     Dosage: 1000 MG, ONCE, ORAL
     Route: 048
     Dates: start: 20090907, end: 20090907

REACTIONS (7)
  - COMA [None]
  - CONVULSION [None]
  - ELECTROCARDIOGRAM QRS COMPLEX PROLONGED [None]
  - MULTIPLE DRUG OVERDOSE INTENTIONAL [None]
  - RESPIRATORY DEPRESSION [None]
  - SUICIDE ATTEMPT [None]
  - TACHYARRHYTHMIA [None]
